FAERS Safety Report 15434827 (Version 1)
Quarter: 2018Q3

REPORT INFORMATION
  Report Type: Spontaneous
  Country: US (occurrence: US)
  Receive Date: 20180922
  Receipt Date: 20180922
  Transmission Date: 20181010
  Serious: Yes (Life-Threatening, Hospitalization)
  Sender: FDA-Public Use
  Company Number: None

PATIENT
  Age: 62 Year
  Sex: Female
  Weight: 99 kg

DRUGS (7)
  1. LODINE [Suspect]
     Active Substance: ETODOLAC
     Indication: BACK PAIN
     Dosage: ?          QUANTITY:1 TABLET(S);?
     Route: 048
  2. LODINE [Suspect]
     Active Substance: ETODOLAC
     Indication: FALL
     Dosage: ?          QUANTITY:1 TABLET(S);?
     Route: 048
  3. LODINE [Suspect]
     Active Substance: ETODOLAC
     Indication: BACK INJURY
     Dosage: ?          QUANTITY:1 TABLET(S);?
     Route: 048
  4. MOTRIN [Concomitant]
     Active Substance: IBUPROFEN
  5. TYLENOL [Concomitant]
     Active Substance: ACETAMINOPHEN
  6. ASPIRIN. [Concomitant]
     Active Substance: ASPIRIN
  7. MULTIPLE VITAMINS [Concomitant]
     Active Substance: VITAMINS

REACTIONS (9)
  - Asthenia [None]
  - Pain [None]
  - Product solubility abnormal [None]
  - Abdominal pain [None]
  - Peripheral coldness [None]
  - Vomiting [None]
  - Large intestinal ulcer [None]
  - Painful respiration [None]
  - Malaise [None]

NARRATIVE: CASE EVENT DATE: 20061204
